FAERS Safety Report 24170430 (Version 3)
Quarter: 2024Q3

REPORT INFORMATION
  Report Type: Spontaneous
  Country: US (occurrence: US)
  Receive Date: 20240803
  Receipt Date: 20240906
  Transmission Date: 20241017
  Serious: No
  Sender: ROCHE
  Company Number: US-ROCHE-10000040783

PATIENT
  Age: 45 Year
  Sex: Female
  Weight: 113.4 kg

DRUGS (2)
  1. XOLAIR [Suspect]
     Active Substance: OMALIZUMAB
     Indication: Urticaria
     Dosage: 2 OF 150MG PFS, IN THE FAT, EVERY OTHER MONDAY, DRUG STILL BEING ADMINISTERED
     Route: 058
  2. XOLAIR [Suspect]
     Active Substance: OMALIZUMAB
     Indication: Food allergy

REACTIONS (6)
  - Accidental exposure to product [Unknown]
  - No adverse event [Unknown]
  - Off label use [Unknown]
  - Device defective [Unknown]
  - Needle issue [Unknown]
  - Device malfunction [Unknown]

NARRATIVE: CASE EVENT DATE: 20240715
